FAERS Safety Report 19458330 (Version 1)
Quarter: 2021Q2

REPORT INFORMATION
  Report Type: Spontaneous
  Country: DE (occurrence: DE)
  Receive Date: 20210624
  Receipt Date: 20210624
  Transmission Date: 20210717
  Serious: Yes (Other)
  Sender: FDA-Public Use
  Company Number: NVSC2021DE137710

PATIENT
  Age: 77 Year
  Sex: Female

DRUGS (1)
  1. LETROHEXAL 2,5 MG FILMTABLETTEN [Suspect]
     Active Substance: LETROZOLE
     Indication: PRODUCT USED FOR UNKNOWN INDICATION
     Dosage: UNK
     Route: 065
     Dates: start: 2021, end: 202105

REACTIONS (4)
  - Pain in extremity [Unknown]
  - Arrhythmia [Unknown]
  - Arthritis [Unknown]
  - Dizziness [Unknown]
